FAERS Safety Report 15656098 (Version 4)
Quarter: 2018Q4

REPORT INFORMATION
  Report Type: Report from Study
  Country: ZW (occurrence: ZW)
  Receive Date: 20181126
  Receipt Date: 20181219
  Transmission Date: 20190205
  Serious: Yes (Death, Life-Threatening, Hospitalization, Other)
  Sender: FDA-Public Use
  Company Number: ZW-ASTELLAS-2018US050207

PATIENT
  Age: 32 Year
  Sex: Female

DRUGS (8)
  1. INSULIN [Concomitant]
     Active Substance: INSULIN NOS
     Indication: PRODUCT USED FOR UNKNOWN INDICATION
     Dosage: UNK UNK, UNKNOWN FREQ.
     Route: 065
  2. FLUCONAZOLE. [Suspect]
     Active Substance: FLUCONAZOLE
     Indication: MENINGITIS CRYPTOCOCCAL
     Route: 065
     Dates: start: 201810, end: 201810
  3. DEXTROSE. [Concomitant]
     Active Substance: DEXTROSE
     Indication: PRODUCT USED FOR UNKNOWN INDICATION
     Dosage: UNK UNK, UNKNOWN FREQ.
     Route: 065
  4. CALCIUM GLUCONATE. [Concomitant]
     Active Substance: CALCIUM GLUCONATE
     Indication: PRODUCT USED FOR UNKNOWN INDICATION
     Dosage: UNK UNK, UNKNOWN FREQ.
     Route: 065
  5. FLUCYTOSINE. [Suspect]
     Active Substance: FLUCYTOSINE
     Indication: MENINGITIS CRYPTOCOCCAL
     Route: 065
     Dates: start: 20180924, end: 201810
  6. COTRIMOXAZOLE [Concomitant]
     Active Substance: SULFAMETHOXAZOLE\TRIMETHOPRIM
     Indication: PRODUCT USED FOR UNKNOWN INDICATION
     Dosage: UNK UNK, UNKNOWN FREQ.
     Route: 065
  7. SLOW MAG                           /07370001/ [Concomitant]
     Active Substance: MAGNESIUM CHLORIDE
     Indication: PRODUCT USED FOR UNKNOWN INDICATION
     Dosage: UNK UNK, UNKNOWN FREQ.
     Route: 065
  8. AMPHOTERICIN B, LIPOSOME [Suspect]
     Active Substance: AMPHOTERICIN B
     Indication: MENINGITIS CRYPTOCOCCAL
     Route: 065
     Dates: start: 20180924, end: 201810

REACTIONS (3)
  - Renal impairment [Fatal]
  - Anaemia [Recovered/Resolved]
  - Hospitalisation [Fatal]

NARRATIVE: CASE EVENT DATE: 20181003
